FAERS Safety Report 5369424-2 (Version None)
Quarter: 2007Q2

REPORT INFORMATION
  Report Type: 
  Country: None (occurrence: None)
  Receive Date: 20070625
  Receipt Date: 20070618
  Transmission Date: 20071010
  Serious: Yes (Other)
  Sender: FDA-Public Use
  Company Number: IT-ELI_LILLY_AND_COMPANY-IT200706004771

PATIENT
  Age: 25 Year
  Sex: Female

DRUGS (2)
  1. ZYPREXA [Suspect]
     Dosage: 10 MG, UNK
     Dates: start: 20060601, end: 20070501
  2. ESCITALOPRAM OXALATE [Concomitant]
     Dates: start: 20060101, end: 20070501

REACTIONS (3)
  - AMENORRHOEA [None]
  - HYPERPROLACTINAEMIA [None]
  - HYPERPROTEINAEMIA [None]
